FAERS Safety Report 13608042 (Version 2)
Quarter: 2018Q1

REPORT INFORMATION
  Report Type: Spontaneous
  Country: US (occurrence: US)
  Receive Date: 20170602
  Receipt Date: 20180116
  Transmission Date: 20180508
  Serious: Yes (Other)
  Sender: FDA-Public Use
  Company Number: US-LEXICON PHARMACEUTICALS, INC-17-1606-00082

PATIENT
  Age: 86 Year
  Sex: Male
  Weight: 61.4 kg

DRUGS (2)
  1. SANDOSTATIN LAR DEPOT [Concomitant]
     Active Substance: OCTREOTIDE ACETATE
  2. TELOTRISTAT ETHYL [Suspect]
     Active Substance: TELOTRISTAT ETHYL
     Indication: CARCINOID TUMOUR
     Route: 048
     Dates: start: 20170321, end: 20170405

REACTIONS (3)
  - Diarrhoea [Unknown]
  - Disease progression [Unknown]
  - Hospice care [Unknown]

NARRATIVE: CASE EVENT DATE: 2017
